FAERS Safety Report 7609187-0 (Version None)
Quarter: 2011Q3

REPORT INFORMATION
  Report Type: 
  Country: None (occurrence: None)
  Receive Date: 20110713
  Receipt Date: 20110713
  Transmission Date: 20111222
  Serious: No
  Sender: FDA-Public Use
  Company Number: None

PATIENT
  Sex: Male

DRUGS (1)
  1. PROMACTA [Suspect]
     Dosage: 50 MG DAILY PO
     Route: 048
     Dates: start: 20100728

REACTIONS (1)
  - PLATELET COUNT INCREASED [None]
